FAERS Safety Report 10056750 (Version 1)
Quarter: 2014Q2

REPORT INFORMATION
  Report Type: Spontaneous
  Country: US (occurrence: US)
  Receive Date: 20140403
  Receipt Date: 20140403
  Transmission Date: 20141212
  Serious: Yes (Other)
  Sender: FDA-Public Use
  Company Number: PHHY2014US036601

PATIENT
  Age: 67 Year
  Sex: Male

DRUGS (4)
  1. 5-FLUOROURACIL [Suspect]
     Indication: COLORECTAL CANCER
     Dosage: 200 MG/M2, UNK
     Route: 040
  2. 5-FLUOROURACIL [Suspect]
     Dosage: 1200 MG/M2, UNK
     Route: 041
  3. OXALIPLATIN [Suspect]
     Indication: COLORECTAL CANCER
     Dosage: 75 MG/M2, UNK
  4. LEUCOVORIN CALCIUM [Suspect]
     Indication: COLORECTAL CANCER

REACTIONS (5)
  - Ascites [Unknown]
  - Splenomegaly [Unknown]
  - Hepatic cirrhosis [Unknown]
  - Blood bilirubin increased [Recovering/Resolving]
  - Stomatitis [Unknown]
